FAERS Safety Report 9198492 (Version 1)
Quarter: 2013Q1

REPORT INFORMATION
  Report Type: Spontaneous
  Country: GB (occurrence: GB)
  Receive Date: 20130329
  Receipt Date: 20130329
  Transmission Date: 20140127
  Serious: Yes (Other)
  Sender: FDA-Public Use
  Company Number: PHFR2012GB006695

PATIENT
  Age: 28 Year
  Sex: Male

DRUGS (2)
  1. CLOZARIL [Suspect]
     Indication: SCHIZOPHRENIA, PARANOID TYPE
     Dosage: 50 MG,
     Route: 048
     Dates: start: 20080516
  2. AMISULPRIDE [Concomitant]
     Indication: SCHIZOPHRENIA, PARANOID TYPE
     Dosage: 50 MG,
     Route: 048

REACTIONS (4)
  - Oropharyngeal pain [Unknown]
  - Paraesthesia [Unknown]
  - Differential white blood cell count abnormal [Recovered/Resolved]
  - Chest pain [Unknown]
